FAERS Safety Report 8098339-4 (Version None)
Quarter: 2012Q1

REPORT INFORMATION
  Report Type: 
  Country: None (occurrence: None)
  Receive Date: 20120131
  Receipt Date: 20120120
  Transmission Date: 20120608
  Serious: Yes (Death, Hospitalization)
  Sender: FDA-Public Use
  Company Number: JP-AMGEN-JPNCT2011053920

PATIENT
  Age: 72 Year
  Sex: Male
  Weight: 69 kg

DRUGS (24)
  1. ERYTHROCIN LACTOBIONATE [Suspect]
     Route: 041
     Dates: start: 20110926, end: 20110930
  2. LEVOLEUCOVORIN CALCIUM [Concomitant]
     Route: 041
     Dates: start: 20110818
  3. LEVOLEUCOVORIN CALCIUM [Concomitant]
     Route: 041
     Dates: start: 20110915, end: 20110915
  4. WARFARIN SODIUM [Concomitant]
     Indication: PROPHYLAXIS
     Route: 048
     Dates: start: 20100101
  5. MAGMITT [Concomitant]
     Indication: CONSTIPATION
     Route: 048
     Dates: start: 20100101
  6. MINOCYCLINE HCL [Suspect]
     Indication: PROPHYLAXIS
     Route: 048
     Dates: start: 20110916, end: 20110925
  7. ERBITUX [Suspect]
     Indication: COLORECTAL CANCER
     Route: 041
     Dates: start: 20110817, end: 20110817
  8. FLUOROURACIL [Concomitant]
     Indication: COLORECTAL CANCER
     Route: 041
     Dates: start: 20090511
  9. FLUOROURACIL [Concomitant]
     Route: 041
     Dates: start: 20110915, end: 20110915
  10. PYDOXAL [Concomitant]
     Indication: NEUROPATHY PERIPHERAL
     Route: 048
     Dates: start: 20100101
  11. PANITUMUMAB [Suspect]
     Indication: COLORECTAL CANCER
     Dosage: 400 MG, Q2WK
     Route: 041
     Dates: start: 20110915, end: 20110915
  12. MEROPENEM [Suspect]
     Indication: INTERSTITIAL LUNG DISEASE
     Route: 041
     Dates: start: 20110926
  13. VANCOMYCIN [Suspect]
     Route: 041
     Dates: start: 20111004, end: 20111006
  14. LEVOLEUCOVORIN CALCIUM [Concomitant]
     Route: 041
     Dates: end: 20110803
  15. DEXAMETHASONE SODIUM PHOSPHATE [Concomitant]
     Route: 042
  16. FLUOROURACIL [Concomitant]
     Route: 041
     Dates: start: 20100721, end: 20101027
  17. FLUOROURACIL [Concomitant]
     Route: 041
     Dates: start: 20110818
  18. RABEPRAZOLE SODIUM [Concomitant]
     Indication: GASTRIC ULCER
     Route: 048
     Dates: start: 20100101
  19. ZOPICOOL [Concomitant]
     Route: 048
     Dates: start: 20100101
  20. OXALIPLATIN [Concomitant]
     Indication: COLORECTAL CANCER
     Dosage: 100 MG, Q2WK
     Route: 041
     Dates: start: 20090511, end: 20110803
  21. LEVOLEUCOVORIN CALCIUM [Concomitant]
     Route: 041
     Dates: start: 20100721, end: 20101027
  22. HYDROCORTISONE SODIUM SUCCINATE [Concomitant]
     Indication: PROPHYLAXIS
     Route: 042
     Dates: start: 20090801, end: 20110817
  23. FLUOROURACIL [Concomitant]
     Route: 041
     Dates: end: 20110803
  24. LEVOLEUCOVORIN CALCIUM [Concomitant]
     Indication: COLORECTAL CANCER
     Route: 041
     Dates: start: 20090511

REACTIONS (1)
  - INTERSTITIAL LUNG DISEASE [None]
